FAERS Safety Report 5351881-9 (Version None)
Quarter: 2007Q2

REPORT INFORMATION
  Report Type: 
  Country: None (occurrence: None)
  Receive Date: 20070609
  Receipt Date: 20070605
  Transmission Date: 20071010
  Serious: Yes (Death)
  Sender: FDA-Public Use
  Company Number: TR-ABBOTT-07P-161-0365904-00

PATIENT
  Sex: Female
  Weight: 89 kg

DRUGS (1)
  1. WARFARIN SODIUM [Suspect]
     Indication: THROMBOSIS PROPHYLAXIS
     Dates: start: 20050611, end: 20050613

REACTIONS (1)
  - SKIN NECROSIS [None]
